FAERS Safety Report 5096589-2 (Version None)
Quarter: 2006Q3

REPORT INFORMATION
  Report Type: 
  Country: None (occurrence: None)
  Receive Date: 20060830
  Receipt Date: 20060815
  Transmission Date: 20061208
  Serious: Yes (Hospitalization)
  Sender: FDA-Public Use
  Company Number: 112139ISR

PATIENT
  Age: 14 Year
  Sex: Female

DRUGS (3)
  1. LAMOTRIGINE [Suspect]
     Indication: EPILEPSY
     Dosage: ORAL
     Route: 048
     Dates: start: 20060608, end: 20060627
  2. VALPROATE SODIUM [Suspect]
     Dosage: ORAL
     Route: 048
     Dates: end: 20060508
  3. NORETHISTERONE [Concomitant]

REACTIONS (3)
  - BILE DUCT STONE [None]
  - DILATATION INTRAHEPATIC DUCT ACQUIRED [None]
  - PANCREATITIS [None]
